FAERS Safety Report 7655972-9 (Version None)
Quarter: 2011Q3

REPORT INFORMATION
  Report Type: 
  Country: None (occurrence: None)
  Receive Date: 20110801
  Receipt Date: 20110715
  Transmission Date: 20111222
  Serious: Yes (Hospitalization)
  Sender: FDA-Public Use
  Company Number: 2011MA008960

PATIENT
  Age: 7 Year
  Sex: Male

DRUGS (2)
  1. METHYLPHENIDATE HCL [Suspect]
     Indication: ATTENTION DEFICIT/HYPERACTIVITY DISORDER
     Dosage: 10 MG;PO
     Route: 048
  2. RISPERIDONE [Suspect]
     Indication: ABNORMAL BEHAVIOUR
     Dosage: 2 MG

REACTIONS (6)
  - AKATHISIA [None]
  - INSOMNIA [None]
  - ATTENTION DEFICIT/HYPERACTIVITY DISORDER [None]
  - HYPOPHAGIA [None]
  - DYSKINESIA [None]
  - LIMB DISCOMFORT [None]
